FAERS Safety Report 8985204 (Version 1)
Quarter: 2012Q4

REPORT INFORMATION
  Report Type: 
  Country: US (occurrence: US)
  Receive Date: 20121226
  Receipt Date: 20121226
  Transmission Date: 20130627
  Serious: Yes (Hospitalization, Disabling, Other)
  Sender: FDA-Public Use
  Company Number: US-PAR PHARMACEUTICAL, INC-2010MA002281

PATIENT
  Sex: Female
  Weight: 72.56 kg

DRUGS (53)
  1. METOCLOPRAMIDE [Suspect]
     Indication: ABDOMINAL DISCOMFORT
     Dosage: 10 mg, qid
     Route: 048
     Dates: start: 19910726, end: 2005
  2. METOCLOPRAMIDE [Suspect]
     Indication: GASTROOESOPHAGEAL REFLUX DISEASE
  3. ADDERALL [Concomitant]
     Indication: PRODUCT USED FOR UNKNOWN INDICATION
     Dosage: UNK, Unknown
     Route: 065
  4. ALENDRONATE [Concomitant]
     Indication: PRODUCT USED FOR UNKNOWN INDICATION
     Dosage: UNK, Unknown
     Route: 065
  5. ALEVE [Concomitant]
     Indication: PRODUCT USED FOR UNKNOWN INDICATION
     Dosage: UNK, Unknown
     Route: 065
  6. AMBIEN [Concomitant]
     Indication: PRODUCT USED FOR UNKNOWN INDICATION
     Dosage: UNK, Unknown
     Route: 065
  7. ANTIVERT                           /00007101/ [Concomitant]
     Indication: PRODUCT USED FOR UNKNOWN INDICATION
     Dosage: UNK, Unknown
     Route: 065
  8. ARICEPT [Concomitant]
     Indication: PRODUCT USED FOR UNKNOWN INDICATION
     Dosage: UNK, Unknown
     Route: 065
  9. B12                                /00056201/ [Concomitant]
     Indication: PRODUCT USED FOR UNKNOWN INDICATION
     Dosage: UNK, Unknown
     Route: 065
  10. BACTRIM [Concomitant]
     Indication: PRODUCT USED FOR UNKNOWN INDICATION
     Dosage: UNK, Unknown
     Route: 065
  11. BELLERGAL-S [Concomitant]
     Indication: PRODUCT USED FOR UNKNOWN INDICATION
     Dosage: UNK, Unknown
     Route: 065
  12. BENTYL [Concomitant]
     Indication: PRODUCT USED FOR UNKNOWN INDICATION
     Dosage: UNK, Unknown
     Route: 065
  13. BONIVA [Concomitant]
     Indication: PRODUCT USED FOR UNKNOWN INDICATION
     Dosage: UNK, Unknown
     Route: 065
  14. BROMOCRIPTINE [Concomitant]
     Indication: PRODUCT USED FOR UNKNOWN INDICATION
     Dosage: UNK, Unknown
     Route: 065
  15. CALCIUM +D                         /00188401/ [Concomitant]
     Indication: PRODUCT USED FOR UNKNOWN INDICATION
     Dosage: UNK, Unknown
     Route: 065
  16. CELEBREX [Concomitant]
     Indication: PRODUCT USED FOR UNKNOWN INDICATION
     Dosage: UNK, Unknown
     Route: 065
  17. CIPRO                              /00697201/ [Concomitant]
     Indication: PRODUCT USED FOR UNKNOWN INDICATION
     Dosage: UNK, Unknown
     Route: 065
  18. CLONAZEPAM [Concomitant]
     Indication: PRODUCT USED FOR UNKNOWN INDICATION
     Dosage: UNK, Unknown
     Route: 065
  19. CLOZAPINE [Concomitant]
     Indication: PRODUCT USED FOR UNKNOWN INDICATION
     Dosage: UNK, Unknown
     Route: 065
  20. CLOZARIL [Concomitant]
     Indication: PRODUCT USED FOR UNKNOWN INDICATION
     Dosage: UNK, Unknown
     Route: 065
  21. COGENTIN [Concomitant]
     Indication: PRODUCT USED FOR UNKNOWN INDICATION
     Dosage: UNK, Unknown
     Route: 065
  22. CRANBERRY                          /01512301/ [Concomitant]
     Indication: PRODUCT USED FOR UNKNOWN INDICATION
     Dosage: UNK, Unknown
     Route: 065
  23. DICYCLOMINE                        /00068601/ [Concomitant]
     Indication: PRODUCT USED FOR UNKNOWN INDICATION
     Dosage: UNK, Unknown
     Route: 065
  24. DITROPAN XL [Concomitant]
     Indication: PRODUCT USED FOR UNKNOWN INDICATION
     Dosage: UNK, Unknown
     Route: 065
  25. DULCOLAX                           /00064401/ [Concomitant]
     Indication: PRODUCT USED FOR UNKNOWN INDICATION
     Dosage: UNK, Unknown
     Route: 065
  26. EFFEXOR [Concomitant]
     Indication: PRODUCT USED FOR UNKNOWN INDICATION
     Dosage: UNK, Unknown
     Route: 065
  27. FENTANYL [Concomitant]
     Indication: PRODUCT USED FOR UNKNOWN INDICATION
     Dosage: UNK, Unknown
     Route: 065
  28. FLEXERIL                           /00428402/ [Concomitant]
     Indication: PRODUCT USED FOR UNKNOWN INDICATION
     Dosage: UNK, Unknown
     Route: 065
  29. GABAPENTIN [Concomitant]
     Indication: PRODUCT USED FOR UNKNOWN INDICATION
     Dosage: UNK, Unknown
     Route: 065
  30. GLUCOSAMINE CHONDROITIN            /01430901/ [Concomitant]
     Indication: PRODUCT USED FOR UNKNOWN INDICATION
     Dosage: UNK, Unknown
     Route: 065
  31. HEPARIN [Concomitant]
     Indication: PRODUCT USED FOR UNKNOWN INDICATION
     Dosage: UNK, Unknown
     Route: 065
  32. HYDROCODONE W/APAP [Concomitant]
     Indication: PRODUCT USED FOR UNKNOWN INDICATION
     Dosage: UNK, Unknown
     Route: 065
  33. LEVBID [Concomitant]
     Indication: PRODUCT USED FOR UNKNOWN INDICATION
     Dosage: UNK, Unknown
     Route: 065
  34. LEVOFLOXACIN [Concomitant]
     Indication: PRODUCT USED FOR UNKNOWN INDICATION
     Dosage: UNK, Unknown
     Route: 065
  35. LEXAPRO [Concomitant]
     Indication: PRODUCT USED FOR UNKNOWN INDICATION
     Dosage: UNK, Unknown
     Route: 065
  36. LORTAB                             /00607101/ [Concomitant]
     Indication: PRODUCT USED FOR UNKNOWN INDICATION
     Dosage: UNK, Unknown
     Route: 065
  37. MACROBID                           /00024401/ [Concomitant]
     Indication: PRODUCT USED FOR UNKNOWN INDICATION
     Dosage: UNK, Unknown
     Route: 065
  38. MIRALAX                            /00754501/ [Concomitant]
     Indication: PRODUCT USED FOR UNKNOWN INDICATION
     Dosage: UNK, Unknown
     Route: 065
  39. MIRAPEX [Concomitant]
     Indication: PRODUCT USED FOR UNKNOWN INDICATION
     Dosage: UNK, Unknown
     Route: 065
  40. NEXIUM                             /01479302/ [Concomitant]
     Indication: PRODUCT USED FOR UNKNOWN INDICATION
     Dosage: UNK, Unknown
     Route: 065
  41. PAROXETINE [Concomitant]
     Indication: PRODUCT USED FOR UNKNOWN INDICATION
     Dosage: UNK, Unknown
     Route: 065
  42. PERI-COLACE [Concomitant]
     Indication: PRODUCT USED FOR UNKNOWN INDICATION
     Dosage: UNK, Unknown
     Route: 065
  43. PRILOSEC                           /00661201/ [Concomitant]
     Indication: PRODUCT USED FOR UNKNOWN INDICATION
     Dosage: UNK, Unknown
     Route: 065
  44. PROPULSID [Concomitant]
     Indication: PRODUCT USED FOR UNKNOWN INDICATION
     Dosage: UNK, Unknown
     Route: 065
  45. QUESTRAN [Concomitant]
     Indication: PRODUCT USED FOR UNKNOWN INDICATION
     Dosage: UNK, Unknown
     Route: 065
  46. QUETIAPINE [Concomitant]
     Indication: PRODUCT USED FOR UNKNOWN INDICATION
     Dosage: UNK, Unknown
     Route: 065
  47. SENOKOT                            /00142201/ [Concomitant]
     Indication: PRODUCT USED FOR UNKNOWN INDICATION
     Dosage: UNK, Unknown
     Route: 065
  48. SEROQUEL [Concomitant]
     Indication: PRODUCT USED FOR UNKNOWN INDICATION
     Dosage: UNK, Unknown
     Route: 065
  49. STRATTERA [Concomitant]
     Indication: PRODUCT USED FOR UNKNOWN INDICATION
     Dosage: UNK, Unknown
     Route: 065
  50. TETRABENAZINE [Concomitant]
     Indication: PRODUCT USED FOR UNKNOWN INDICATION
     Dosage: UNK, Unknown
     Route: 065
  51. VICODIN [Concomitant]
     Indication: PRODUCT USED FOR UNKNOWN INDICATION
     Dosage: UNK, Unknown
     Route: 065
  52. VIOXX [Concomitant]
     Indication: PRODUCT USED FOR UNKNOWN INDICATION
     Dosage: UNK, Unknown
     Route: 065
  53. WELLBUTRIN [Concomitant]
     Indication: PRODUCT USED FOR UNKNOWN INDICATION
     Dosage: UNK, Unknown
     Route: 065

REACTIONS (179)
  - Injury [Unknown]
  - Incorrect drug administration duration [Unknown]
  - Movement disorder [Unknown]
  - Disability [Unknown]
  - Nervous system disorder [Unknown]
  - Extrapyramidal disorder [Unknown]
  - Activities of daily living impaired [Unknown]
  - Deformity [Unknown]
  - Pain [Unknown]
  - Emotional distress [Unknown]
  - Anxiety [Unknown]
  - Mental disorder [Unknown]
  - Economic problem [Unknown]
  - Back pain [Unknown]
  - Intervertebral disc protrusion [Unknown]
  - Spinal osteoarthritis [Unknown]
  - Hyperprolactinaemia [Unknown]
  - Galactorrhoea [Unknown]
  - Urinary retention [Unknown]
  - Post procedural constipation [Unknown]
  - Dilatation intrahepatic duct acquired [Unknown]
  - Biliary dilatation [Unknown]
  - Investigation abnormal [Unknown]
  - Bile duct stenosis [Unknown]
  - Biliary colic [Unknown]
  - Neoplasm [Unknown]
  - Endoscopy upper gastrointestinal tract [Unknown]
  - Duodenitis [Unknown]
  - Abdominal pain [Unknown]
  - Bile duct obstruction [Unknown]
  - Abdominal pain upper [Unknown]
  - Nausea [Unknown]
  - Abdominal distension [Unknown]
  - Haemangioma of liver [Unknown]
  - Diarrhoea [Unknown]
  - Decreased appetite [Unknown]
  - Reflux gastritis [Unknown]
  - Uterine leiomyoma [Unknown]
  - Blood prolactin increased [Unknown]
  - Cerebrovascular disorder [Unknown]
  - Gliosis [Unknown]
  - Demyelination [Unknown]
  - Hepatic steatosis [Unknown]
  - Cholelithiasis [Unknown]
  - Giardiasis [Unknown]
  - Diverticulum intestinal [Unknown]
  - Haemorrhoids [Unknown]
  - Pulmonary embolism [Unknown]
  - Fall [Unknown]
  - Tremor [Unknown]
  - Dry mouth [Unknown]
  - Bruxism [Unknown]
  - Tachycardia [Unknown]
  - Confusional state [Unknown]
  - Disorientation [Unknown]
  - Headache [Unknown]
  - Odynophagia [Unknown]
  - Temporomandibular joint syndrome [Unknown]
  - Dyskinesia [Not Recovered/Not Resolved]
  - Mucosal dryness [Unknown]
  - Head titubation [Unknown]
  - Restlessness [Unknown]
  - Urinary tract infection [Unknown]
  - Klebsiella infection [Unknown]
  - Breast tenderness [Unknown]
  - Breast pain [Unknown]
  - Pituitary tumour [Unknown]
  - Neurodegenerative disorder [Unknown]
  - Amnesia [Unknown]
  - Depression [Unknown]
  - Stress [Unknown]
  - Gait disturbance [Unknown]
  - Lethargy [Unknown]
  - Psychiatric symptom [Unknown]
  - Asthenia [Unknown]
  - Chorea [Unknown]
  - Memory impairment [Unknown]
  - Disturbance in attention [Unknown]
  - Frustration [Unknown]
  - Depressed mood [Unknown]
  - Generalised anxiety disorder [Unknown]
  - Vitamin B12 deficiency [Unknown]
  - Cognitive disorder [Unknown]
  - Insomnia [Unknown]
  - Periodic limb movement disorder [Unknown]
  - Increased appetite [Unknown]
  - Abnormal weight gain [Unknown]
  - Gastrooesophageal reflux disease [Unknown]
  - Condition aggravated [Unknown]
  - Foot fracture [Unknown]
  - Joint dislocation [Unknown]
  - Limb injury [Unknown]
  - Tardive dyskinesia [Unknown]
  - Pollakiuria [Unknown]
  - Urinary incontinence [Unknown]
  - Weight increased [Unknown]
  - Poor quality sleep [Unknown]
  - Plantar fasciitis [Unknown]
  - Salmonellosis [Unknown]
  - Gastroenteritis salmonella [Unknown]
  - Fatigue [Unknown]
  - Burning sensation [Unknown]
  - Impaired healing [Unknown]
  - Dehydration [Unknown]
  - Orthostatic intolerance [Unknown]
  - Balance disorder [Unknown]
  - Speech disorder [Unknown]
  - Impaired work ability [Unknown]
  - Dysarthria [Unknown]
  - Restless legs syndrome [Unknown]
  - Weight loss poor [Unknown]
  - Pain in extremity [Unknown]
  - Ataxia [Unknown]
  - Flat affect [Unknown]
  - Somnolence [Unknown]
  - Anxiety disorder [Unknown]
  - Obesity [Unknown]
  - Constipation [Unknown]
  - Aspartate aminotransferase increased [Unknown]
  - Dizziness [Unknown]
  - Diplopia [Unknown]
  - Peroneal nerve palsy [Unknown]
  - Pernicious anaemia [Unknown]
  - Dystonia [Unknown]
  - Vomiting [Unknown]
  - Nuclear magnetic resonance imaging brain abnormal [Unknown]
  - Feeling abnormal [Unknown]
  - Chest discomfort [Unknown]
  - Dysphagia [Unknown]
  - Chest pain [Unknown]
  - Parkinsonism [Unknown]
  - Oesophageal spasm [Unknown]
  - Angina pectoris [Unknown]
  - Panic attack [Unknown]
  - Gastrointestinal pain [Unknown]
  - Tongue biting [Unknown]
  - Initial insomnia [Unknown]
  - Protrusion tongue [Unknown]
  - Arthralgia [Unknown]
  - Eyelid ptosis [Unknown]
  - Myasthenic syndrome [Unknown]
  - Muscular weakness [Unknown]
  - Hyporeflexia [Unknown]
  - Myopathy [Unknown]
  - Musculoskeletal stiffness [Unknown]
  - Aphasia [Unknown]
  - Dementia [Unknown]
  - Mental impairment [Unknown]
  - Repetitive speech [Unknown]
  - Osteoarthritis [Unknown]
  - General physical condition abnormal [Unknown]
  - Mood altered [Unknown]
  - Irritability [Unknown]
  - Dysphoria [Unknown]
  - Slow response to stimuli [Unknown]
  - Major depression [Unknown]
  - Learning disorder [Unknown]
  - Executive dysfunction [Unknown]
  - Exercise lack of [Unknown]
  - Sleep disorder [Unknown]
  - Bedridden [Unknown]
  - Musculoskeletal chest pain [Unknown]
  - Musculoskeletal pain [Unknown]
  - Muscle strain [Unknown]
  - Post-traumatic neck syndrome [Unknown]
  - Muscle spasms [Unknown]
  - Arthritis [Unknown]
  - Snoring [Unknown]
  - Sleep apnoea syndrome [Unknown]
  - Hypopnoea [Unknown]
  - Abnormal dreams [Unknown]
  - Hypothalamo-pituitary disorder [Unknown]
  - Breast cancer [Unknown]
  - Ankle fracture [Unknown]
  - Osteopenia [Unknown]
  - Social avoidant behaviour [Unknown]
  - Sciatica [Unknown]
  - Intelligence test abnormal [Unknown]
  - Walking aid user [Unknown]
